FAERS Safety Report 8342838-4 (Version None)
Quarter: 2012Q2

REPORT INFORMATION
  Report Type: 
  Country: None (occurrence: None)
  Receive Date: 20120508
  Receipt Date: 20120502
  Transmission Date: 20120825
  Serious: No
  Sender: FDA-Public Use
  Company Number: US-PFIZER INC-2012108560

PATIENT
  Age: 17 Year
  Sex: Female

DRUGS (1)
  1. IBUPROFEN (ADVIL) [Suspect]
     Indication: PAIN
     Dosage: 2 CAPSULES OF 200MG, UNK
     Route: 048
     Dates: start: 20120502

REACTIONS (1)
  - PAIN [None]
